FAERS Safety Report 26097774 (Version 1)
Quarter: 2025Q4

REPORT INFORMATION
  Report Type: Report from Study
  Country: EU (occurrence: EU)
  Receive Date: 20251127
  Receipt Date: 20251127
  Transmission Date: 20260119
  Serious: Yes (Other)
  Sender: TEVA
  Company Number: EU-TEVA-VS-3396337

PATIENT
  Age: 61 Year
  Sex: Female

DRUGS (1)
  1. COPAXONE [Suspect]
     Active Substance: GLATIRAMER ACETATE
     Indication: Relapsing multiple sclerosis
     Dosage: TIME INTERVAL: 0.33333333 WEEKS: DOSAGE: 40 MG/ML START DATE: SIGNED ON 26-JUL-2007
     Route: 058

REACTIONS (3)
  - Visual impairment [Unknown]
  - Sensory loss [Unknown]
  - General physical health deterioration [Unknown]
